FAERS Safety Report 14079163 (Version 1)
Quarter: 2017Q4

REPORT INFORMATION
  Report Type: Report from Study
  Country: IL (occurrence: IL)
  Receive Date: 20171012
  Receipt Date: 20171012
  Transmission Date: 20180321
  Serious: Yes (Hospitalization, Other)
  Sender: FDA-Public Use
  Company Number: IL-AMGEN-ISRSL2017150887

PATIENT
  Age: 79 Year
  Sex: Male
  Weight: 63.6 kg

DRUGS (5)
  1. DISOTHIAZIDE [Suspect]
     Active Substance: HYDROCHLOROTHIAZIDE
     Indication: PRODUCT USED FOR UNKNOWN INDICATION
     Dosage: UNK
     Route: 065
  2. VALSARTAN. [Concomitant]
     Active Substance: VALSARTAN
     Dosage: UNK
  3. CADEX [Concomitant]
     Dosage: UNK
  4. NPLATE [Suspect]
     Active Substance: ROMIPLOSTIM
     Indication: IMMUNE THROMBOCYTOPENIC PURPURA
     Dosage: 250 MUG, Q2WK
     Route: 065
  5. PREDNISONE. [Concomitant]
     Active Substance: PREDNISONE

REACTIONS (15)
  - Hyponatraemia [Recovered/Resolved]
  - Nausea [Unknown]
  - Vertigo [Recovering/Resolving]
  - Proteinuria [Unknown]
  - Hypernatriuria [Unknown]
  - Hyperkalaemia [Unknown]
  - Dizziness [Recovering/Resolving]
  - Hypoalbuminaemia [Unknown]
  - Ear haemorrhage [Unknown]
  - Thrombocytopenia [Unknown]
  - Balance disorder [Unknown]
  - Headache [Unknown]
  - Blood pressure abnormal [Recovered/Resolved]
  - Nystagmus [Unknown]
  - Normocytic anaemia [Unknown]
